FAERS Safety Report 9125658 (Version 1)
Quarter: 2013Q1

REPORT INFORMATION
  Report Type: Spontaneous
  Country: UA (occurrence: UA)
  Receive Date: 20130121
  Receipt Date: 20130121
  Transmission Date: 20140127
  Serious: Yes (Other)
  Sender: FDA-Public Use
  Company Number: UA-ABBOTT-13P-269-1036097-00

PATIENT
  Age: 28 Month
  Sex: Female
  Weight: 13 kg

DRUGS (3)
  1. KLACID [Suspect]
     Indication: BRONCHITIS
     Route: 048
     Dates: start: 20130112, end: 20130114
  2. VENTOLIN [Concomitant]
     Indication: PRODUCT USED FOR UNKNOWN INDICATION
     Dates: start: 20130114, end: 20130114
  3. AERIUS [Concomitant]
     Indication: PRODUCT USED FOR UNKNOWN INDICATION

REACTIONS (3)
  - Convulsion [Recovered/Resolved]
  - Crying [Recovered/Resolved]
  - Urinary incontinence [Recovered/Resolved]
